FAERS Safety Report 12558351 (Version 1)
Quarter: 2016Q3

REPORT INFORMATION
  Report Type: Spontaneous
  Country: US (occurrence: US)
  Receive Date: 20160714
  Receipt Date: 20160714
  Transmission Date: 20161109
  Serious: No
  Sender: FDA-Public Use
  Company Number: US-GALDERMA-US16003316

PATIENT
  Age: 60 Year
  Sex: Female

DRUGS (8)
  1. SOOLANTRA [Suspect]
     Active Substance: IVERMECTIN
     Indication: ROSACEA
     Dosage: 1%
     Route: 061
     Dates: start: 20160324
  2. CLINIQUE TAKE THE DAY OFF CLEANSING OIL [Concomitant]
     Indication: THERAPEUTIC SKIN CARE TOPICAL
     Route: 061
  3. OIL OF OLAY GENTLE FOAMING CLEANSER [Concomitant]
     Indication: THERAPEUTIC SKIN CARE TOPICAL
     Route: 061
  4. UNKNOWN HIGH SPF SUNSCREEN [Concomitant]
     Indication: PROPHYLAXIS AGAINST SOLAR RADIATION
     Route: 061
  5. CLINIQUE RINSE OFF FOAMING CLEANSER [Concomitant]
     Indication: THERAPEUTIC SKIN CARE TOPICAL
     Route: 061
  6. CLINIQUE RINSE OFF FOAMING CLEANSER [Concomitant]
     Indication: THERAPEUTIC SKIN CARE TOPICAL
     Route: 061
  7. CLINIQUE POWDER FOUNDATION [Concomitant]
     Indication: THERAPEUTIC SKIN CARE TOPICAL
     Route: 061
  8. CLINIQUE TAKE THE DAY OFF CLEANSING OIL [Concomitant]
     Indication: THERAPEUTIC SKIN CARE TOPICAL
     Route: 061

REACTIONS (2)
  - Skin discolouration [Recovered/Resolved]
  - Drug ineffective [Recovered/Resolved]

NARRATIVE: CASE EVENT DATE: 2016
